FAERS Safety Report 15229305 (Version 1)
Quarter: 2018Q3

REPORT INFORMATION
  Report Type: Spontaneous
  Country: US (occurrence: US)
  Receive Date: 20180706
  Receipt Date: 20180706
  Transmission Date: 20181010
  Serious: No
  Sender: FDA-Public Use
  Company Number: None

PATIENT
  Age: 17 Year
  Sex: Female

DRUGS (1)
  1. FEMYNOR [Suspect]
     Active Substance: ETHINYL ESTRADIOL\NORGESTIMATE
     Route: 048

REACTIONS (3)
  - Haemorrhage [None]
  - Muscle spasms [None]
  - Product substitution issue [None]
